FAERS Safety Report 4393371-6 (Version None)
Quarter: 2004Q3

REPORT INFORMATION
  Report Type: 
  Country: None (occurrence: None)
  Receive Date: 20040707
  Receipt Date: 20040707
  Transmission Date: 20050211
  Serious: Yes (Hospitalization)
  Sender: FDA-Public Use
  Company Number: None

PATIENT
  Sex: Male

DRUGS (12)
  1. WARFARIN SODIUM [Suspect]
     Indication: CEREBROVASCULAR ACCIDENT
     Dosage: 2 MG DAILY ORAL
     Route: 048
  2. METRONIDAZOLE 250MG TAB [Suspect]
     Indication: BACTERIA STOOL IDENTIFIED
     Dosage: 500 MG TID ORAL
     Route: 048
  3. LOVASTATIN [Concomitant]
  4. ASPIRIN [Concomitant]
  5. CARVEDILOL [Concomitant]
  6. DIGOXIN [Concomitant]
  7. FELODIPINE [Concomitant]
  8. FERROUS SULFATE TAB [Concomitant]
  9. FUROSEMIDE [Concomitant]
  10. LISINOPRIL [Concomitant]
  11. MONTELUKAST [Concomitant]
  12. RABEPRAZOLE SODIUM [Concomitant]

REACTIONS (2)
  - CARDIAC FAILURE CONGESTIVE [None]
  - RECTAL HAEMORRHAGE [None]
